FAERS Safety Report 25642945 (Version 1)
Quarter: 2025Q3

REPORT INFORMATION
  Report Type: Spontaneous
  Country: US (occurrence: US)
  Receive Date: 20250805
  Receipt Date: 20250805
  Transmission Date: 20251021
  Serious: No
  Sender: AJANTA PHARMA USA INC
  Company Number: US-AJANTA-2025AJA00103

PATIENT
  Age: 66 Year
  Sex: Female
  Weight: 119 kg

DRUGS (15)
  1. CHOLESTYRAMINE [Suspect]
     Active Substance: CHOLESTYRAMINE
     Indication: Colitis microscopic
     Route: 048
     Dates: start: 20250720
  2. METOPROLOL [Concomitant]
     Active Substance: METOPROLOL
  3. FAMOTIDINE [Concomitant]
     Active Substance: FAMOTIDINE
  4. CLOPIDOGREL [Concomitant]
     Active Substance: CLOPIDOGREL BISULFATE
  5. SPIRONOLACTONE [Concomitant]
     Active Substance: SPIRONOLACTONE
  6. ROSUVASTATIN [Concomitant]
     Active Substance: ROSUVASTATIN
  7. VALSARTAN [Concomitant]
     Active Substance: VALSARTAN
  8. FISH OIL [Concomitant]
     Active Substance: FISH OIL
     Dosage: SOFT GEL
  9. VITAMIN C [Concomitant]
     Active Substance: ASCORBIC ACID
  10. LOW-DOSE ASPIRIN [Concomitant]
     Active Substance: ASPIRIN
  11. CALCIUM [Concomitant]
     Active Substance: CALCIUM
  12. BIOTIN [Concomitant]
     Active Substance: BIOTIN
  13. Gelcap vision shield [Concomitant]
  14. Fiber therapy [Concomitant]
  15. MELATONIN [Concomitant]
     Active Substance: MELATONIN

REACTIONS (5)
  - Oral discomfort [Unknown]
  - Product taste abnormal [Unknown]
  - Product physical consistency issue [Unknown]
  - Product use in unapproved indication [Unknown]
  - Product substitution issue [Unknown]

NARRATIVE: CASE EVENT DATE: 20250720
